FAERS Safety Report 4575318-2 (Version None)
Quarter: 2005Q1

REPORT INFORMATION
  Report Type: 
  Country: None (occurrence: None)
  Receive Date: 20050209
  Receipt Date: 20041216
  Transmission Date: 20050727
  Serious: Yes (Other)
  Sender: FDA-Public Use
  Company Number: GB-JNJFOC-20041202943

PATIENT
  Sex: Female
  Weight: 65 kg

DRUGS (8)
  1. REMICADE [Suspect]
     Indication: RHEUMATOID ARTHRITIS
     Route: 042
  2. METHOTREXATE [Concomitant]
  3. DICLOFENAC [Concomitant]
  4. TYLEX [Concomitant]
  5. TYLEX [Concomitant]
  6. TYLEX [Concomitant]
  7. TRAMADOL HCL [Concomitant]
  8. FOLIC ACID [Concomitant]

REACTIONS (1)
  - NON-HODGKIN'S LYMPHOMA [None]
